FAERS Safety Report 24613072 (Version 1)
Quarter: 2024Q4

REPORT INFORMATION
  Report Type: Spontaneous
  Country: CN (occurrence: CN)
  Receive Date: 20241113
  Receipt Date: 20241113
  Transmission Date: 20250114
  Serious: Yes (Other)
  Sender: NOVARTIS
  Company Number: CN-002147023-NVSC2024CN217311

PATIENT
  Age: 60 Year
  Sex: Male
  Weight: 57.6 kg

DRUGS (10)
  1. CYCLOSPORINE [Suspect]
     Active Substance: CYCLOSPORINE
     Indication: Aplastic anaemia
     Dosage: 40.000 MG, BID PUMP INJECTION
     Route: 065
     Dates: start: 20240814, end: 20240819
  2. THYMOGLOBULINE [Suspect]
     Active Substance: LAPINE T-LYMPHOCYTE IMMUNE GLOBULIN
     Indication: Aplastic anaemia
     Dosage: 25.000 MG, QID PUMP INJECTION
     Route: 065
     Dates: start: 20240814, end: 20240817
  3. FLUDARABINE PHOSPHATE [Suspect]
     Active Substance: FLUDARABINE PHOSPHATE
     Indication: Aplastic anaemia
     Dosage: 50.000 MG, QD
     Route: 041
     Dates: start: 20240815, end: 20240819
  4. CYCLOPHOSPHAMIDE [Concomitant]
     Active Substance: CYCLOPHOSPHAMIDE
     Indication: Aplastic anaemia
     Dosage: 1.400 G, QD
     Route: 041
     Dates: start: 20240818, end: 20240820
  5. BUSULFEX [Concomitant]
     Active Substance: BUSULFAN
     Indication: Aplastic anaemia
     Dosage: 60.000 MG, QD
     Route: 041
     Dates: start: 20240818, end: 20240818
  6. MESNA [Concomitant]
     Active Substance: MESNA
     Indication: Aplastic anaemia
     Dosage: 0.800 G, QD
     Route: 041
     Dates: start: 20240818, end: 20240820
  7. SODIUM CHLORIDE [Concomitant]
     Active Substance: SODIUM CHLORIDE
     Indication: Product used for unknown indication
     Dosage: 50 ML MICROPUMP
     Route: 065
     Dates: start: 20240814, end: 20240817
  8. SODIUM CHLORIDE [Concomitant]
     Active Substance: SODIUM CHLORIDE
     Dosage: 60 ML, Q12H MICRO PUMP
     Route: 065
     Dates: start: 20240814, end: 20240819
  9. SODIUM CHLORIDE [Concomitant]
     Active Substance: SODIUM CHLORIDE
     Dosage: 100 ML, QD
     Route: 041
     Dates: start: 20240815, end: 20240819
  10. SODIUM CHLORIDE [Concomitant]
     Active Substance: SODIUM CHLORIDE
     Dosage: 250 ML, QD
     Route: 041
     Dates: start: 20240818, end: 20240820

REACTIONS (5)
  - Cardiac failure [Recovering/Resolving]
  - Chest discomfort [Recovering/Resolving]
  - Tachypnoea [Recovering/Resolving]
  - Diarrhoea [Recovering/Resolving]
  - Asthenia [Recovering/Resolving]

NARRATIVE: CASE EVENT DATE: 20240821
